FAERS Safety Report 6805326-X (Version None)
Quarter: 2010Q2

REPORT INFORMATION
  Report Type: 
  Country: None (occurrence: None)
  Receive Date: 20100628
  Receipt Date: 20071102
  Transmission Date: 20101027
  Serious: Yes (Other)
  Sender: FDA-Public Use
  Company Number: US-PFIZER INC-2007092903

PATIENT
  Age: 82 Year
  Sex: Male

DRUGS (1)
  1. XALATAN [Suspect]

REACTIONS (2)
  - BENIGN PROSTATIC HYPERPLASIA [None]
  - DYSPNOEA [None]
